FAERS Safety Report 5846404-1 (Version None)
Quarter: 2008Q3

REPORT INFORMATION
  Report Type: 
  Country: None (occurrence: None)
  Receive Date: 20080815
  Receipt Date: 20080801
  Transmission Date: 20090109
  Serious: Yes (Hospitalization, Other)
  Sender: FDA-Public Use
  Company Number: US-AMGEN-US295432

PATIENT
  Sex: Female

DRUGS (17)
  1. PROCRIT [Suspect]
     Indication: ANAEMIA
     Route: 058
     Dates: start: 20071213, end: 20080714
  2. TYLENOL [Concomitant]
  3. BENADRYL [Concomitant]
  4. PHENERGAN HCL [Concomitant]
  5. VALGANCICLOVIR HCL [Concomitant]
  6. NEXIUM [Concomitant]
  7. PEGYLATED INTERFERON ALFA-2B [Concomitant]
     Dates: start: 20071011, end: 20080709
  8. RIBAVIRIN [Concomitant]
     Dates: start: 20071011, end: 20080709
  9. CIPRO [Concomitant]
  10. CELEXA [Concomitant]
  11. REGLAN [Concomitant]
  12. ZOSYN [Concomitant]
  13. RANITIDINE [Concomitant]
  14. VANCOMYCIN HCL [Concomitant]
  15. MAALOX [Concomitant]
  16. PROGRAF [Concomitant]
     Dates: start: 20070517
  17. MYCOPHENOLATE MOFETIL [Concomitant]
     Dates: start: 20070517, end: 20080425

REACTIONS (4)
  - APLASIA PURE RED CELL [None]
  - HEPATIC FAILURE [None]
  - KLEBSIELLA SEPSIS [None]
  - PARVOVIRUS B19 SEROLOGY POSITIVE [None]
